FAERS Safety Report 18627781 (Version 1)
Quarter: 2020Q4

REPORT INFORMATION
  Report Type: Spontaneous
  Country: US (occurrence: US)
  Receive Date: 20201216
  Receipt Date: 20201216
  Transmission Date: 20210114
  Serious: No
  Sender: FDA-Public Use
  Company Number: None

PATIENT
  Age: 58 Year
  Sex: Female
  Weight: 72.12 kg

DRUGS (2)
  1. LANSOPRAZOLE 30MG TEVA BRAND GENERIC [Suspect]
     Active Substance: LANSOPRAZOLE
     Indication: GASTROOESOPHAGEAL REFLUX DISEASE
     Route: 048
     Dates: start: 201809, end: 201812
  2. LANSOPRAZOLE 30MG SKY BRAND GENERIC [Suspect]
     Active Substance: LANSOPRAZOLE
     Route: 048
     Dates: start: 202002

REACTIONS (4)
  - Palpitations [None]
  - Asthenia [None]
  - Dysphagia [None]
  - Nausea [None]

NARRATIVE: CASE EVENT DATE: 20180914
